FAERS Safety Report 16530902 (Version 2)
Quarter: 2019Q3

REPORT INFORMATION
  Report Type: Spontaneous
  Country: FI (occurrence: FI)
  Receive Date: 20190704
  Receipt Date: 20190719
  Transmission Date: 20191004
  Serious: Yes (Other)
  Sender: FDA-Public Use
  Company Number: PHHY2019FI141464

PATIENT
  Age: 19 Year
  Sex: Female

DRUGS (9)
  1. VINORELBINE [Suspect]
     Active Substance: VINORELBINE TARTRATE
     Indication: DESMOID TUMOUR
     Dosage: 60 MG/M2, ON DAYS 1 AND 8 OF EVERY 21 DAYS CYCLE
     Route: 048
  2. PEGYLATED LIPOSOMAL DOXORUBICIN HYDROCHLORIDE [Suspect]
     Active Substance: DOXORUBICIN HYDROCHLORIDE
     Indication: DESMOID TUMOUR
     Dosage: 50 MG/M2, UNK
     Route: 065
  3. RIBOCICLIB. [Suspect]
     Active Substance: RIBOCICLIB
     Indication: DESMOID TUMOUR
     Dosage: 600 MG, QD, 3 WEEKS ON AND 1 WEEK OFF
     Route: 065
     Dates: start: 201701
  4. TOREMIFENE [Suspect]
     Active Substance: TOREMIFENE
     Indication: DESMOID TUMOUR
     Dosage: 60 MG, Q8H
     Route: 065
  5. GOSERELIN [Suspect]
     Active Substance: GOSERELIN
     Indication: DESMOID TUMOUR
     Dosage: 3.6 MG, QMO
     Route: 065
  6. TAMOXIFEN [Suspect]
     Active Substance: TAMOXIFEN
     Indication: DESMOID TUMOUR
     Dosage: 40 MG, QD
     Route: 065
  7. LETROZOLE. [Suspect]
     Active Substance: LETROZOLE
     Indication: DESMOID TUMOUR
     Dosage: 2.5 MG, QD
     Route: 065
  8. RIBOCICLIB. [Suspect]
     Active Substance: RIBOCICLIB
     Dosage: 400 MG, QD
     Route: 065
  9. RIBOCICLIB. [Suspect]
     Active Substance: RIBOCICLIB
     Dosage: 200 MG, QD
     Route: 065

REACTIONS (14)
  - Sensory disturbance [Unknown]
  - Product use in unapproved indication [Unknown]
  - Acute promyelocytic leukaemia [Unknown]
  - Malignant neoplasm progression [Unknown]
  - Neutropenia [Unknown]
  - Drug ineffective [Unknown]
  - Rash vesicular [Unknown]
  - Paraesthesia [Unknown]
  - Pain [Unknown]
  - Stomatitis [Unknown]
  - Rash [Unknown]
  - Off label use [Unknown]
  - Desmoid tumour [Unknown]
  - Fatigue [Unknown]
